FAERS Safety Report 6197719-1 (Version None)
Quarter: 2009Q2

REPORT INFORMATION
  Report Type: 
  Country: None (occurrence: None)
  Receive Date: 20090521
  Receipt Date: 20090515
  Transmission Date: 20091009
  Serious: Yes (Hospitalization, Other)
  Sender: FDA-Public Use
  Company Number: FI-AVENTIS-200915078GDDC

PATIENT
  Age: 49 Year
  Sex: Female

DRUGS (6)
  1. DOCETAXEL [Suspect]
     Route: 042
     Dates: start: 20090319, end: 20090319
  2. TRASTUZUMAB [Suspect]
     Route: 042
     Dates: start: 20090319, end: 20090319
  3. CEFTRIAXONE [Concomitant]
     Dates: start: 20090328, end: 20090401
  4. TOBRAMYCIN [Concomitant]
     Dates: start: 20090328, end: 20090401
  5. FILGRASTIM [Concomitant]
     Dates: start: 20090328, end: 20090401
  6. CEFALEXINE [Concomitant]
     Dates: start: 20090401, end: 20090406

REACTIONS (2)
  - ARTHRITIS REACTIVE [None]
  - FEBRILE NEUTROPENIA [None]
